FAERS Safety Report 9457978 (Version 4)
Quarter: 2014Q3

REPORT INFORMATION
  Report Type: Spontaneous
  Country: US (occurrence: US)
  Receive Date: 20130814
  Receipt Date: 20140722
  Transmission Date: 20150326
  Serious: Yes (Death, Hospitalization, Other)
  Sender: FDA-Public Use
  Company Number: US-009507513-1308USA005793

PATIENT
  Sex: Male
  Weight: 118.82 kg

DRUGS (3)
  1. JANUMET [Suspect]
     Active Substance: METFORMIN HYDROCHLORIDE\SITAGLIPTIN PHOSPHATE
     Dosage: 50MG/500MG, DAILY
     Route: 048
     Dates: start: 20110112
  2. JANUMET [Suspect]
     Active Substance: METFORMIN HYDROCHLORIDE\SITAGLIPTIN PHOSPHATE
     Dosage: 50/1000 MG DAILY
     Route: 048
  3. JANUMET [Suspect]
     Active Substance: METFORMIN HYDROCHLORIDE\SITAGLIPTIN PHOSPHATE
     Indication: TYPE 2 DIABETES MELLITUS
     Dosage: 50MG / 1000MG, 1 CAP TWICE A DAY
     Route: 048
     Dates: start: 20110112

REACTIONS (30)
  - Coagulopathy [Unknown]
  - Dyspepsia [Unknown]
  - Adenocarcinoma pancreas [Fatal]
  - Hepatic steatosis [Unknown]
  - Spinal osteoarthritis [Unknown]
  - Cholecystectomy [Unknown]
  - Device occlusion [Unknown]
  - Anaemia [Unknown]
  - Pneumonia [Unknown]
  - Gastrooesophageal reflux disease [Unknown]
  - Hiatus hernia [Unknown]
  - Tonsillectomy [Unknown]
  - Large intestine polyp [Unknown]
  - Back pain [Unknown]
  - Hypotension [Unknown]
  - Radiotherapy [Unknown]
  - Lymphadenopathy [Unknown]
  - Gastritis [Unknown]
  - Metastases to liver [Unknown]
  - Prostate cancer [Unknown]
  - Hypertension [Unknown]
  - Abscess intestinal [Unknown]
  - Renal cyst [Unknown]
  - Prostatectomy [Unknown]
  - Leukocytosis [Unknown]
  - Lumbar spinal stenosis [Unknown]
  - Memory impairment [Unknown]
  - Appendicectomy [Unknown]
  - Abdominal distension [Unknown]
  - Nephrolithiasis [Unknown]

NARRATIVE: CASE EVENT DATE: 2011
